FAERS Safety Report 4954484-0 (Version None)
Quarter: 2006Q1

REPORT INFORMATION
  Report Type: 
  Country: None (occurrence: None)
  Receive Date: 20060327
  Receipt Date: 20060214
  Transmission Date: 20060701
  Serious: Yes (Death, Life-Threatening)
  Sender: FDA-Public Use
  Company Number: DK-AVENTIS-200611348GDDC

PATIENT
  Age: 57 Year
  Sex: Male

DRUGS (9)
  1. AMARYL [Suspect]
     Indication: DIABETES MELLITUS NON-INSULIN-DEPENDENT
     Dates: start: 20060208, end: 20060210
  2. ASPIRIN [Concomitant]
     Route: 048
  3. VERAPAMIL [Concomitant]
     Route: 048
  4. FORTZAAR [Concomitant]
  5. SIMVASTATIN [Concomitant]
     Route: 048
  6. B-COMBIN [Concomitant]
     Route: 048
  7. BROMAN [Concomitant]
     Route: 048
  8. PHYSIOTENS [Concomitant]
     Route: 048
  9. NITROGLYCERIN [Concomitant]
     Dosage: DOSE: UNKNOWN

REACTIONS (2)
  - HYPOGLYCAEMIC COMA [None]
  - HYPOGLYCAEMIC ENCEPHALOPATHY [None]
